FAERS Safety Report 4286245-2 (Version None)
Quarter: 2004Q1

REPORT INFORMATION
  Report Type: 
  Country: None (occurrence: None)
  Receive Date: 20040115
  Receipt Date: 20030214
  Transmission Date: 20041129
  Serious: Yes (Hospitalization)
  Sender: FDA-Public Use
  Company Number: NSADSS2003007315

PATIENT
  Age: 60 Year
  Sex: Female
  Weight: 73.9363 kg

DRUGS (5)
  1. DOXIL [Suspect]
     Indication: BREAST CANCER FEMALE
     Dosage: 40 MG/M2, INTRAVENOUS DRIP
     Route: 041
     Dates: start: 20030205, end: 20030205
  2. SOLU-MEDROL [Concomitant]
  3. BENADRYL [Concomitant]
  4. DECADRON [Concomitant]
  5. ANZEMET (DOLASETRON MESILATE) [Concomitant]

REACTIONS (6)
  - CHEST DISCOMFORT [None]
  - COUGH [None]
  - DYSPNOEA [None]
  - ELECTROCARDIOGRAM ABNORMAL [None]
  - HYPERSENSITIVITY [None]
  - INJURY [None]
